FAERS Safety Report 5663360-X (Version None)
Quarter: 2008Q1

REPORT INFORMATION
  Report Type: 
  Country: None (occurrence: None)
  Receive Date: 20080307
  Receipt Date: 20080227
  Transmission Date: 20080703
  Serious: Yes (Hospitalization)
  Sender: FDA-Public Use
  Company Number: 028-C5013-08021612

PATIENT
  Age: 65 Year
  Sex: Male
  Weight: 65.4 kg

DRUGS (5)
  1. CC-5013 (LENALIDOMIDE) (CAPSULES) [Suspect]
     Indication: NON-HODGKIN'S LYMPHOMA
     Dosage: 25 MG, OD X 21 DAYS, ORAL
     Route: 048
     Dates: start: 20080103, end: 20080226
  2. COLACE (DOCUSATE SODIUM) [Concomitant]
  3. TYLENOL #3 (PANADEINE CO (TABLETS) [Concomitant]
  4. ANUSOL -HC (ANUSOL-HC) (OINTMENT) [Concomitant]
  5. LOSEC (OMEPRAZOLE) (20 MILLIGRAM, CAPSULES) [Concomitant]

REACTIONS (4)
  - DECREASED APPETITE [None]
  - ILEUS [None]
  - PYREXIA [None]
  - WEIGHT DECREASED [None]
